FAERS Safety Report 8112595-5 (Version None)
Quarter: 2012Q1

REPORT INFORMATION
  Report Type: 
  Country: None (occurrence: None)
  Receive Date: 20120203
  Receipt Date: 20120123
  Transmission Date: 20120608
  Serious: Yes (Other)
  Sender: FDA-Public Use
  Company Number: BR-ROCHE-1033015

PATIENT
  Age: 66 Year
  Sex: Female

DRUGS (2)
  1. ORLISTAT [Suspect]
     Indication: WEIGHT CONTROL
  2. CAPECITABINE [Concomitant]
     Indication: ADENOCARCINOMA

REACTIONS (1)
  - CARCINOEMBRYONIC ANTIGEN INCREASED [None]
